FAERS Safety Report 14293556 (Version 1)
Quarter: 2017Q4

REPORT INFORMATION
  Report Type: Report from Study
  Country: None (occurrence: US)
  Receive Date: 20171215
  Receipt Date: 20171215
  Transmission Date: 20180321
  Serious: Yes (Death, Hospitalization, Other)
  Sender: FDA-Public Use
  Company Number: US-ABBVIE-17K-163-2193823-00

PATIENT
  Age: 74 Year
  Sex: Female
  Weight: 42.68 kg

DRUGS (6)
  1. HUMIRA [Suspect]
     Active Substance: ADALIMUMAB
     Indication: CROHN^S DISEASE
     Dosage: LOADING DOSE
     Route: 058
     Dates: start: 201709, end: 201709
  2. LOMOTIL [Suspect]
     Active Substance: ATROPINE SULFATE\DIPHENOXYLATE HYDROCHLORIDE
     Indication: DIARRHOEA
     Route: 065
     Dates: start: 2017, end: 2017
  3. HUMIRA [Suspect]
     Active Substance: ADALIMUMAB
     Dosage: FOUR WEEKS AFTER 160 MG DOSE
     Route: 058
     Dates: end: 201711
  4. CAPTOPRIL. [Concomitant]
     Active Substance: CAPTOPRIL
     Indication: CARDIAC DISORDER
  5. HUMIRA [Suspect]
     Active Substance: ADALIMUMAB
     Dosage: LOADING DOSE (TWO WEEKS AFTER 160 MG DOSE)
     Route: 058
     Dates: start: 2017, end: 2017
  6. LEVOTHYROXINE. [Concomitant]
     Active Substance: LEVOTHYROXINE
     Indication: HYPOTHYROIDISM

REACTIONS (19)
  - Respiratory failure [Fatal]
  - Loss of consciousness [Unknown]
  - Medical device site discharge [Unknown]
  - Medical device site swelling [Not Recovered/Not Resolved]
  - Bacterial infection [Not Recovered/Not Resolved]
  - Crohn^s disease [Unknown]
  - Hepatic failure [Not Recovered/Not Resolved]
  - Device related infection [Not Recovered/Not Resolved]
  - Yellow skin [Unknown]
  - Renal failure [Not Recovered/Not Resolved]
  - Fluid overload [Unknown]
  - Diarrhoea [Not Recovered/Not Resolved]
  - Incoherent [Unknown]
  - Somnolence [Unknown]
  - Dehydration [Not Recovered/Not Resolved]
  - Terminal state [Unknown]
  - Hypotension [Not Recovered/Not Resolved]
  - Anaemia [Not Recovered/Not Resolved]
  - Lung infection [Not Recovered/Not Resolved]

NARRATIVE: CASE EVENT DATE: 2017
